FAERS Safety Report 24226372 (Version 1)
Quarter: 2024Q3

REPORT INFORMATION
  Report Type: Spontaneous
  Country: FR (occurrence: None)
  Receive Date: 20240820
  Receipt Date: 20240820
  Transmission Date: 20241017
  Serious: Yes (Hospitalization)
  Sender: ASTRAZENECA
  Company Number: 2024A184223

PATIENT
  Age: 73 Year
  Sex: Male
  Weight: 70 kg

DRUGS (1)
  1. EVUSHELD [Suspect]
     Active Substance: CILGAVIMAB\TIXAGEVIMAB
     Indication: COVID-19 treatment
     Dosage: 1.0DF UNKNOWN
     Route: 042
     Dates: start: 20221015

REACTIONS (1)
  - Oxygen saturation decreased [Not Recovered/Not Resolved]

NARRATIVE: CASE EVENT DATE: 20221016
